FAERS Safety Report 9322072 (Version 1)
Quarter: 2013Q2

REPORT INFORMATION
  Report Type: Spontaneous
  Country: ES (occurrence: None)
  Receive Date: 20130529
  Receipt Date: 20130529
  Transmission Date: 20140414
  Serious: Yes (Hospitalization)
  Sender: FDA-Public Use
  Company Number: IMP_06710_2013

PATIENT
  Age: 55 Year
  Sex: Male

DRUGS (4)
  1. OMEPRAZOLE [Suspect]
     Indication: HIATUS HERNIA
  2. VALSARTAN [Concomitant]
  3. BISOPROLOL [Concomitant]
  4. VENLAFAXINE [Concomitant]

REACTIONS (14)
  - Diarrhoea [None]
  - Nausea [None]
  - Vomiting [None]
  - Abdominal pain upper [None]
  - Hypoaesthesia [None]
  - Tremor [None]
  - Hypokalaemia [None]
  - Electrocardiogram QT prolonged [None]
  - Large intestine polyp [None]
  - Hypomagnesaemia [None]
  - Hypocalcaemia [None]
  - Barrett^s oesophagus [None]
  - Muscle spasms [None]
  - Blood parathyroid hormone decreased [None]
